FAERS Safety Report 18472088 (Version 4)
Quarter: 2020Q4

REPORT INFORMATION
  Report Type: Report from Study
  Country: FR (occurrence: FR)
  Receive Date: 20201106
  Receipt Date: 20201126
  Transmission Date: 20210114
  Serious: Yes (Hospitalization, Other)
  Sender: FDA-Public Use
  Company Number: FR-AMGEN-FRACT2020177882

PATIENT
  Age: 71 Year
  Sex: Female
  Weight: 85 kg

DRUGS (9)
  1. OXALIPLATINE [Suspect]
     Active Substance: OXALIPLATIN
     Indication: COLORECTAL CANCER METASTATIC
     Dosage: 168 MILLIGRAM
     Route: 042
     Dates: start: 20200917
  2. PANITUMUMAB [Suspect]
     Active Substance: PANITUMUMAB
     Indication: COLORECTAL CANCER METASTATIC
     Dosage: 510 MILLIGRAM
     Route: 042
     Dates: start: 20200917
  3. 5 FU [Suspect]
     Active Substance: FLUOROURACIL
     Dosage: 4725 MILLIGRAM
     Route: 042
     Dates: start: 20201022
  4. 5 FU [Suspect]
     Active Substance: FLUOROURACIL
     Indication: COLORECTAL CANCER METASTATIC
     Dosage: 800 MILLIGRAM
     Route: 040
     Dates: start: 20200917
  5. 5 FU [Suspect]
     Active Substance: FLUOROURACIL
     Dosage: 800 MILLIGRAM
     Route: 040
     Dates: start: 20201022
  6. FOLINIC ACID [Suspect]
     Active Substance: LEUCOVORIN
     Indication: COLORECTAL CANCER METASTATIC
     Dosage: UNK
     Route: 065
     Dates: start: 20200911
  7. FOLINIC ACID [Suspect]
     Active Substance: LEUCOVORIN
     Dosage: 395 MILLIGRAM
     Route: 042
     Dates: start: 20201022
  8. IRINOTECAN [Suspect]
     Active Substance: IRINOTECAN
     Indication: COLORECTAL CANCER METASTATIC
     Dosage: 300 MILLIGRAM
     Route: 065
     Dates: start: 20200917, end: 20200917
  9. 5 FU [Suspect]
     Active Substance: FLUOROURACIL
     Dosage: UNK
     Route: 042
     Dates: start: 20200917

REACTIONS (2)
  - Clostridium difficile colitis [Recovered/Resolved]
  - Febrile neutropenia [Recovered/Resolved]

NARRATIVE: CASE EVENT DATE: 20201029
